FAERS Safety Report 8430702-1 (Version None)
Quarter: 2012Q2

REPORT INFORMATION
  Report Type: 
  Country: None (occurrence: None)
  Receive Date: 20120612
  Receipt Date: 20120607
  Transmission Date: 20120825
  Serious: Yes (Hospitalization)
  Sender: FDA-Public Use
  Company Number: DE-ROCHE-1076905

PATIENT
  Sex: Female

DRUGS (6)
  1. AVASTIN [Suspect]
     Indication: METASTATIC RENAL CELL CARCINOMA
     Route: 048
     Dates: start: 20090922, end: 20110808
  2. HEXAMIDINE [Concomitant]
     Dates: start: 20110829
  3. OBSIDAN [Concomitant]
     Dates: start: 20090101
  4. METOPROLOL TARTRATE AND HYDROCHLOROTHIAZIDE [Concomitant]
     Dates: start: 20110824
  5. AMLODIPINE [Concomitant]
     Dates: start: 20091023, end: 20111023
  6. ROFERON-A [Suspect]
     Indication: METASTATIC RENAL CELL CARCINOMA
     Route: 048
     Dates: start: 20091112, end: 20111026

REACTIONS (3)
  - PLEURAL EFFUSION [None]
  - HYPERTENSIVE CRISIS [None]
  - NEPHROTIC SYNDROME [None]
